FAERS Safety Report 10695781 (Version 1)
Quarter: 2015Q1

REPORT INFORMATION
  Report Type: Spontaneous
  Country: US (occurrence: US)
  Receive Date: 20150107
  Receipt Date: 20150107
  Transmission Date: 20150721
  Serious: Yes (Hospitalization)
  Sender: FDA-Public Use
  Company Number: US-INCYTE CORPORATION-2014IN004093

PATIENT
  Age: 56 Year
  Sex: Female

DRUGS (11)
  1. MELATONIN [Concomitant]
     Active Substance: MELATONIN
  2. JAKAFI [Suspect]
     Active Substance: RUXOLITINIB
     Indication: MYELOFIBROSIS
     Dosage: 10 MG, BID
     Route: 048
  3. GLUCOSAMINE [Concomitant]
     Active Substance: GLUCOSAMINE
  4. CALCIUM CARBONATE. [Concomitant]
     Active Substance: CALCIUM CARBONATE
  5. MULTIVITAMIN                       /00097801/ [Concomitant]
     Active Substance: VITAMINS
  6. VITAMIN B12 [Concomitant]
     Active Substance: CYANOCOBALAMIN
  7. RANITIDINE [Concomitant]
     Active Substance: RANITIDINE\RANITIDINE HYDROCHLORIDE
  8. ANAGRELIDE [Concomitant]
     Active Substance: ANAGRELIDE
  9. VITAMIN C [Concomitant]
     Active Substance: ASCORBIC ACID
  10. TRAMADOL [Concomitant]
     Active Substance: TRAMADOL
  11. HYDROCODONE [Concomitant]
     Active Substance: HYDROCODONE

REACTIONS (1)
  - Gastric mucosal hypertrophy [Unknown]

NARRATIVE: CASE EVENT DATE: 201411
